FAERS Safety Report 5989156-7 (Version None)
Quarter: 2008Q4

REPORT INFORMATION
  Report Type: 
  Country: None (occurrence: None)
  Receive Date: 20081204
  Receipt Date: 20081128
  Transmission Date: 20090506
  Serious: Yes (Death, Hospitalization)
  Sender: FDA-Public Use
  Company Number: T06-JPN-00095-01

PATIENT
  Age: 83 Year
  Sex: Male
  Weight: 55 kg

DRUGS (3)
  1. MEMANTINE HCL [Suspect]
     Indication: DEMENTIA ALZHEIMER'S TYPE
     Dosage: 20 MG (20 MG, 1 IN 1 D), ORAL
     Route: 048
     Dates: start: 20051218, end: 20060113
  2. SODIUM FERROUS CITRATE (FERROUS CITRATE) (FERROUS CITRATE) [Concomitant]
  3. REBAMIPIDE (REBAMIPIDE) REBAMIPIDE) [Concomitant]

REACTIONS (21)
  - ASCITES [None]
  - BLOOD ALBUMIN DECREASED [None]
  - BLOOD CREATININE INCREASED [None]
  - BLOOD PRESSURE INCREASED [None]
  - BLOOD SODIUM INCREASED [None]
  - BODY TEMPERATURE DECREASED [None]
  - DISSEMINATED INTRAVASCULAR COAGULATION [None]
  - HEART RATE INCREASED [None]
  - LABORATORY TEST ABNORMAL [None]
  - MEAN CELL HAEMOGLOBIN CONCENTRATION DECREASED [None]
  - MEAN CELL HAEMOGLOBIN INCREASED [None]
  - MEAN CELL VOLUME INCREASED [None]
  - NO THERAPEUTIC RESPONSE [None]
  - PANCREAS INFECTION [None]
  - PANCREATIC CYST [None]
  - PANCREATIC NECROSIS [None]
  - PANCREATITIS ACUTE [None]
  - PERITONITIS [None]
  - PLEURAL EFFUSION [None]
  - RESPIRATORY DISORDER [None]
  - ZINC SULPHATE TURBIDITY INCREASED [None]
